FAERS Safety Report 4404219-5 (Version None)
Quarter: 2004Q3

REPORT INFORMATION
  Report Type: 
  Country: None (occurrence: None)
  Receive Date: 20040719
  Receipt Date: 20040707
  Transmission Date: 20050211
  Serious: Yes (Disabling)
  Sender: FDA-Public Use
  Company Number: URSO-2004-009

PATIENT
  Age: 71 Year
  Sex: Male

DRUGS (10)
  1. URSOSAN  (URSODEOXYCHOLIC ACID) [Suspect]
     Indication: CHOLELITHIASIS
     Dosage: 300 MG PO
     Route: 048
     Dates: start: 20000201, end: 20040501
  2. THEO-DUR [Suspect]
     Indication: ASTHMA
     Dosage: 400 MG PO
     Route: 048
     Dates: start: 20040101, end: 20040510
  3. CAMOSTATE (CAMOSTATE MESILATE) [Suspect]
     Indication: CHOLELITHIASIS
     Dosage: 400 MG PO
     Route: 048
     Dates: start: 20000201, end: 20040510
  4. GALLE DONAU (NICOTINIC ACID, NAPHTHYLACETIC ACID) [Suspect]
     Indication: CHOLELITHIASIS
     Dosage: 6 TABLETS PO
     Route: 048
     Dates: start: 20000301, end: 20040510
  5. CIMETRAN (CIMETIDINE) [Suspect]
     Indication: GASTRIC ULCER
     Dosage: PO
     Route: 048
     Dates: start: 20020201, end: 20040501
  6. BISOLVON (BROMOHEXINE HYDROCHLORIDE) [Suspect]
     Indication: ASTHMA
     Dosage: 12 MG, PO
     Route: 048
     Dates: start: 20040101, end: 20040501
  7. SINGULAIR [Suspect]
     Indication: ASTHMA
     Dosage: 10 MG, PO
     Route: 048
     Dates: start: 20040101, end: 20040501
  8. CLARITHROMYCIN [Suspect]
     Indication: PNEUMONIA
     Dosage: 400 MG, PO
     Route: 048
     Dates: start: 20040503, end: 20040510
  9. FORIT (OXYPERTINE) [Suspect]
     Indication: SCHIZOPHRENIA
     Dosage: 20 MG, PO
     Route: 048
  10. GALLE DONAU (NICOTINIC ACID, NAPHTHYL ACETYLSALICYLIC ACID) [Concomitant]

REACTIONS (9)
  - ABDOMINAL PAIN [None]
  - ANOREXIA [None]
  - CHEST PAIN [None]
  - COUGH [None]
  - HAEMOLYTIC ANAEMIA [None]
  - LYMPHOCYTE STIMULATION TEST POSITIVE [None]
  - PNEUMONIA [None]
  - PRODUCTIVE COUGH [None]
  - RHINORRHOEA [None]
